FAERS Safety Report 4827634-4 (Version None)
Quarter: 2005Q4

REPORT INFORMATION
  Report Type: 
  Country: None (occurrence: None)
  Receive Date: 20051110
  Receipt Date: 20051028
  Transmission Date: 20060501
  Serious: Yes (Other)
  Sender: FDA-Public Use
  Company Number: S05-FRA-04643-01

PATIENT
  Age: 43 Year
  Sex: Female

DRUGS (4)
  1. SEROPLEX (ESCITALOPRAM) (ESCITALOPRAM) [Suspect]
     Indication: DEPRESSION
     Dosage: 20 MG QD PO
     Route: 048
  2. SEROPLEX (ESCITALOPRAM) (ESCITALOPRAM) [Suspect]
     Indication: DEPRESSION
     Dosage: 10 MG QD PO
     Route: 048
     Dates: start: 20050914
  3. MEPRONIZINE [Suspect]
     Dates: start: 20050914
  4. BROMAZEPAM [Concomitant]

REACTIONS (1)
  - HEPATITIS [None]
